FAERS Safety Report 10573119 (Version 2)
Quarter: 2014Q4

REPORT INFORMATION
  Report Type: Spontaneous
  Country: IT (occurrence: None)
  Receive Date: 20141106
  Receipt Date: 20141124
  Transmission Date: 20150529
  Serious: Yes (Hospitalization)
  Sender: FDA-Public Use
  Company Number: 2601906

PATIENT
  Age: 41 Year
  Sex: Female

DRUGS (12)
  1. (VINCRISTINE) [Concomitant]
     Active Substance: VINCRISTINE
     Dosage: UNKNOWN (UNKNOWN)
  2. PROZAC [Concomitant]
     Active Substance: FLUOXETINE HYDROCHLORIDE
  3. NISTATINA [Concomitant]
  4. CYCLOPHOSPHAMIDE. [Concomitant]
     Active Substance: CYCLOPHOSPHAMIDE
  5. (CYTARABINE) [Suspect]
     Active Substance: CYTARABINE
     Indication: NON-HODGKIN^S LYMPHOMA
     Dosage: 6000 MG MILLIGRAM (S)  CYCLICAL, INTRAVENOUS
     Route: 042
     Dates: start: 20140928, end: 20140929
  6. METHOTREXATE (METHOTREXATE SODIUM) [Suspect]
     Active Substance: METHOTREXATE SODIUM
     Indication: NON-HODGKIN^S LYMPHOMA
     Dosage: 1600 MG MILLIGRAM (S) (CYCLICAL )
     Route: 042
     Dates: start: 20140926, end: 20140927
  7. (MESNA) [Concomitant]
  8. (DOXORUBICIN ) [Concomitant]
  9. METHOTREXATE (METHOTREXATE SODIUM) [Concomitant]
     Active Substance: METHOTREXATE SODIUM
  10. ACYCLOVIR. [Concomitant]
     Active Substance: ACYCLOVIR
  11. (DEXAMETHASONE) [Concomitant]
     Active Substance: DEXAMETHASONE
  12. LEVOFLOXACIN HEMIHYDRATE [Concomitant]
     Active Substance: LEVOFLOXACIN

REACTIONS (7)
  - Genital tract inflammation [None]
  - Platelet count decreased [None]
  - Febrile neutropenia [None]
  - Mucosal inflammation [None]
  - Pseudomonas infection [None]
  - Haemoglobin decreased [None]
  - Aphthous stomatitis [None]

NARRATIVE: CASE EVENT DATE: 20141007
